FAERS Safety Report 14811709 (Version 1)
Quarter: 2018Q2

REPORT INFORMATION
  Report Type: Report from Study
  Country: US (occurrence: US)
  Receive Date: 20180425
  Receipt Date: 20180425
  Transmission Date: 20180711
  Serious: No
  Sender: FDA-Public Use
  Company Number: US-AMGEN-USASL2018035005

PATIENT
  Age: 64 Year
  Sex: Female

DRUGS (2)
  1. REPATHA [Suspect]
     Active Substance: EVOLOCUMAB
     Indication: HYPERCHOLESTEROLAEMIA
     Dosage: 140 MG, Q2WK
     Route: 065
  2. REPATHA [Suspect]
     Active Substance: EVOLOCUMAB
     Indication: PROPHYLAXIS

REACTIONS (7)
  - Bone pain [Unknown]
  - Muscle spasms [Unknown]
  - Injection site oedema [Unknown]
  - Influenza [Unknown]
  - Injection site pruritus [Unknown]
  - Injection site pain [Unknown]
  - Urinary tract infection [Unknown]
